FAERS Safety Report 9376733 (Version 1)
Quarter: 2013Q3

REPORT INFORMATION
  Report Type: Spontaneous
  Country: US (occurrence: US)
  Receive Date: 20130701
  Receipt Date: 20130701
  Transmission Date: 20140515
  Serious: No
  Sender: FDA-Public Use
  Company Number: US-BIOGENIDEC-2013BI058618

PATIENT
  Age: 54 Year
  Sex: Female

DRUGS (1)
  1. TYSABRI [Suspect]
     Indication: MULTIPLE SCLEROSIS
     Route: 042
     Dates: start: 20060914

REACTIONS (4)
  - Drug hypersensitivity [Recovered/Resolved]
  - Rash generalised [Recovered/Resolved]
  - Multiple sclerosis [Unknown]
  - Herpes zoster [Not Recovered/Not Resolved]
